FAERS Safety Report 26130806 (Version 1)
Quarter: 2025Q4

REPORT INFORMATION
  Report Type: Spontaneous
  Country: GB (occurrence: GB)
  Receive Date: 20251208
  Receipt Date: 20251208
  Transmission Date: 20260117
  Serious: Yes (Other)
  Sender: MYLAN
  Company Number: GB-MYLANLABS-2025M1105216

PATIENT
  Age: 21 Year
  Sex: Male

DRUGS (14)
  1. CLOZAPINE [Suspect]
     Active Substance: CLOZAPINE
     Indication: Schizophrenia
     Dosage: 12.5 MILLIGRAM, QD
  2. CLOZAPINE [Suspect]
     Active Substance: CLOZAPINE
     Dosage: 25 MILLIGRAM, BID (DOSE INCREASED)
  3. CLOZAPINE [Suspect]
     Active Substance: CLOZAPINE
     Dosage: 50 MILLIGRAM, BID
  4. CLOZAPINE [Suspect]
     Active Substance: CLOZAPINE
     Dosage: 100 MILLIGRAM, BID
  5. CLOZAPINE [Suspect]
     Active Substance: CLOZAPINE
     Dosage: 150 MILLIGRAM, BID
  6. CLOZAPINE [Suspect]
     Active Substance: CLOZAPINE
     Dosage: 300 MILLIGRAM, QD
  7. ARIPIPRAZOLE [Concomitant]
     Active Substance: ARIPIPRAZOLE
     Indication: Hyperprolactinaemia
     Dosage: 10 MILLIGRAM
  8. OLANZAPINE [Concomitant]
     Active Substance: OLANZAPINE
     Indication: Schizophrenia
     Dosage: 20 MILLIGRAM
  9. OLANZAPINE [Concomitant]
     Active Substance: OLANZAPINE
     Dosage: 17.5 MILLIGRAM, QD (IN TWO DIVIDED DOSES)
  10. OLANZAPINE [Concomitant]
     Active Substance: OLANZAPINE
     Dosage: 15 MILLIGRAM, QD (IN DIVIDED DOSES)
  11. OLANZAPINE [Concomitant]
     Active Substance: OLANZAPINE
     Dosage: 10 MILLIGRAM, QD (AT THE END OF WEEK 2, DOSE REDUCED)
  12. OLANZAPINE [Concomitant]
     Active Substance: OLANZAPINE
     Dosage: 5 MILLIGRAM, QD (BY END OF WEEK 3)
  13. VALPROATE SODIUM [Concomitant]
     Active Substance: VALPROATE SODIUM
     Indication: Seizure
     Dosage: 500 MILLIGRAM, QD
  14. PREGABALIN [Concomitant]
     Active Substance: PREGABALIN
     Indication: Anxiety
     Dosage: UNK

REACTIONS (2)
  - Tachycardia [Unknown]
  - Contraindicated product administered [Unknown]
